FAERS Safety Report 16559735 (Version 1)
Quarter: 2019Q3

REPORT INFORMATION
  Report Type: Spontaneous
  Country: US (occurrence: US)
  Receive Date: 20190711
  Receipt Date: 20190711
  Transmission Date: 20191004
  Serious: No
  Sender: FDA-Public Use
  Company Number: US-AUROBINDO-AUR-APL-2019-028149

PATIENT

DRUGS (2)
  1. LORAZEPAM TABLETS USP 2 MG [Suspect]
     Active Substance: LORAZEPAM
     Indication: CATATONIA
     Dosage: 1.5 GRAM
     Route: 065
     Dates: start: 20190508, end: 20190508
  2. SARSAPARILLA [Concomitant]
     Indication: PRODUCT USED FOR UNKNOWN INDICATION
     Dosage: UNK
     Route: 065

REACTIONS (3)
  - Wrong technique in product usage process [Recovered/Resolved]
  - Urticaria [Recovered/Resolved]
  - Product use in unapproved indication [Recovered/Resolved]

NARRATIVE: CASE EVENT DATE: 20190508
